FAERS Safety Report 8489391-2 (Version None)
Quarter: 2012Q3

REPORT INFORMATION
  Report Type: 
  Country: None (occurrence: None)
  Receive Date: 20120705
  Receipt Date: 20120627
  Transmission Date: 20120928
  Serious: Yes (Other)
  Sender: FDA-Public Use
  Company Number: US-BRISTOL-MYERS SQUIBB COMPANY-16679771

PATIENT
  Age: 69 Year
  Sex: Male
  Weight: 81 kg

DRUGS (7)
  1. DIOVAN HCT [Concomitant]
  2. IPILIMUMAB [Suspect]
     Indication: MALIGNANT MELANOMA
     Dosage: LAST DOSE ON 11MAY2012
     Route: 042
     Dates: start: 20120309
  3. EFFEXOR XR [Concomitant]
  4. JANUVIA [Concomitant]
  5. MULTI-VITAMIN [Concomitant]
  6. CRESTOR [Concomitant]
  7. METFORMIN HCL [Concomitant]

REACTIONS (1)
  - LIPASE INCREASED [None]
